FAERS Safety Report 4300834-8 (Version None)
Quarter: 2004Q1

REPORT INFORMATION
  Report Type: 
  Country: None (occurrence: None)
  Receive Date: 20040220
  Receipt Date: 20031014
  Transmission Date: 20041129
  Serious: Yes (Disabling)
  Sender: FDA-Public Use
  Company Number: WAES 0310USA01723

PATIENT
  Age: 65 Year
  Sex: Female
  Weight: 68 kg

DRUGS (3)
  1. ELAVIL [Concomitant]
     Indication: BLADDER DISORDER
     Route: 048
  2. DONNATAL [Concomitant]
     Indication: IRRITABLE BOWEL SYNDROME
     Route: 048
  3. ZETIA [Suspect]
     Indication: BLOOD CHOLESTEROL INCREASED
     Route: 048
     Dates: start: 20030801, end: 20030902

REACTIONS (4)
  - HEPATIC ENZYME INCREASED [None]
  - MUSCULAR WEAKNESS [None]
  - POLYMYALGIA RHEUMATICA [None]
  - URINARY TRACT INFECTION [None]
